FAERS Safety Report 7704528-8 (Version None)
Quarter: 2011Q3

REPORT INFORMATION
  Report Type: 
  Country: None (occurrence: None)
  Receive Date: 20110823
  Receipt Date: 20110805
  Transmission Date: 20111222
  Serious: Yes (Hospitalization)
  Sender: FDA-Public Use
  Company Number: US-GLAXOSMITHKLINE-A0834448A

PATIENT
  Age: 45 Year
  Sex: Female
  Weight: 139.1 kg

DRUGS (1)
  1. AVANDIA [Suspect]
     Indication: DIABETES MELLITUS
     Dosage: 8MG PER DAY
     Route: 048
     Dates: start: 20030101, end: 20040101

REACTIONS (5)
  - CARDIAC FAILURE CONGESTIVE [None]
  - ERYTHROSIS [None]
  - ATRIAL FIBRILLATION [None]
  - OEDEMA PERIPHERAL [None]
  - MITRAL VALVE INCOMPETENCE [None]
